FAERS Safety Report 8601797-7 (Version None)
Quarter: 2012Q3

REPORT INFORMATION
  Report Type: 
  Country: None (occurrence: None)
  Receive Date: 20120817
  Receipt Date: 20120418
  Transmission Date: 20120928
  Serious: No
  Sender: FDA-Public Use
  Company Number: US-BRISTOL-MYERS SQUIBB COMPANY-16533606

PATIENT
  Age: 51 Year
  Sex: Male

DRUGS (1)
  1. SPRYCEL [Suspect]

REACTIONS (5)
  - FEELING ABNORMAL [None]
  - CHEST DISCOMFORT [None]
  - DIARRHOEA [None]
  - FATIGUE [None]
  - CONSTIPATION [None]
